FAERS Safety Report 7980024-8 (Version None)
Quarter: 2011Q4

REPORT INFORMATION
  Report Type: 
  Country: None (occurrence: None)
  Receive Date: 20111214
  Receipt Date: 20111205
  Transmission Date: 20120403
  Serious: Yes (Death)
  Sender: FDA-Public Use
  Company Number: PHHY2011US108214

PATIENT
  Age: 46 Year
  Sex: Male

DRUGS (3)
  1. VERAPAMIL [Suspect]
  2. METOPROLOL TARTRATE [Suspect]
  3. GEMFIBROZIL [Suspect]

REACTIONS (2)
  - SUICIDAL IDEATION [None]
  - COMPLETED SUICIDE [None]
